FAERS Safety Report 6882923-7 (Version None)
Quarter: 2010Q3

REPORT INFORMATION
  Report Type: 
  Country: None (occurrence: None)
  Receive Date: 20100729
  Receipt Date: 20100723
  Transmission Date: 20110219
  Serious: Yes (Death)
  Sender: FDA-Public Use
  Company Number: FR-ROCHE-717239

PATIENT
  Sex: Female

DRUGS (2)
  1. AVASTIN [Suspect]
     Indication: PLEURA CARCINOMA
     Route: 042
     Dates: start: 20080801, end: 20100401
  2. GEMZAR [Suspect]
     Indication: PLEURA CARCINOMA
     Route: 042
     Dates: start: 20100101, end: 20100401

REACTIONS (2)
  - HAEMOLYTIC URAEMIC SYNDROME [None]
  - RENAL FAILURE ACUTE [None]
